FAERS Safety Report 17113929 (Version 1)
Quarter: 2019Q4

REPORT INFORMATION
  Report Type: Spontaneous
  Country: GB (occurrence: GB)
  Receive Date: 20191205
  Receipt Date: 20191205
  Transmission Date: 20200122
  Serious: Yes (Other)
  Sender: FDA-Public Use
  Company Number: GB-TEVA-2019-GB-1146691

PATIENT
  Age: 17 Year
  Sex: Male
  Weight: 112 kg

DRUGS (13)
  1. FENTANYL. [Concomitant]
     Active Substance: FENTANYL
     Dosage: 12 MCG
     Dates: start: 20191029
  2. CLONIDINE. [Concomitant]
     Active Substance: CLONIDINE
     Dates: start: 20191029
  3. TRANEXAMIC ACID. [Concomitant]
     Active Substance: TRANEXAMIC ACID
     Dates: start: 20191029
  4. CHIROCAINE [Concomitant]
     Active Substance: LEVOBUPIVACAINE HYDROCHLORIDE
     Dates: start: 20191029
  5. GABAPENTIN. [Suspect]
     Active Substance: GABAPENTIN
     Indication: SPINAL FUSION SURGERY
     Dosage: 300 MG
     Route: 048
     Dates: start: 20191029, end: 20191030
  6. LACTULOSE. [Concomitant]
     Active Substance: LACTULOSE
     Dates: start: 20191029
  7. PARACETAMOL [Concomitant]
     Active Substance: ACETAMINOPHEN
     Dates: start: 20191029
  8. MIDAZOLAM [Concomitant]
     Active Substance: MIDAZOLAM HYDROCHLORIDE
     Dates: start: 20191029
  9. ONDANSETRON [Concomitant]
     Active Substance: ONDANSETRON
     Dates: start: 20191029
  10. CEFUROXIME. [Concomitant]
     Active Substance: CEFUROXIME
     Dates: start: 20191029
  11. PROPOFOL. [Concomitant]
     Active Substance: PROPOFOL
     Dates: start: 20191029
  12. MORPHINE SULFATE. [Concomitant]
     Active Substance: MORPHINE SULFATE
     Dates: start: 20191029
  13. IBUPROFEN. [Concomitant]
     Active Substance: IBUPROFEN
     Dates: start: 20191029

REACTIONS (4)
  - Feeling hot [Recovering/Resolving]
  - Rash erythematous [Unknown]
  - Urticaria [Recovering/Resolving]
  - Dyspnoea [Recovering/Resolving]

NARRATIVE: CASE EVENT DATE: 20191030
